FAERS Safety Report 16715301 (Version 1)
Quarter: 2019Q3

REPORT INFORMATION
  Report Type: Spontaneous
  Country: US (occurrence: US)
  Receive Date: 20190819
  Receipt Date: 20190819
  Transmission Date: 20191005
  Serious: No
  Sender: FDA-Public Use
  Company Number: US-SUN PHARMACEUTICAL INDUSTRIES LTD-2018US-186378

PATIENT
  Sex: Female

DRUGS (1)
  1. SYNALGOS-DC [ASPIRIN\CAFFEINE\DIHYDROCODEINE] [Suspect]
     Active Substance: ASPIRIN\CAFFEINE\DIHYDROCODEINE
     Indication: PAIN
     Dosage: 2 DF, DAILY
     Route: 065
     Dates: start: 201808

REACTIONS (3)
  - Product prescribing error [Unknown]
  - Product storage error [Unknown]
  - Expired product administered [Unknown]

NARRATIVE: CASE EVENT DATE: 201808
